FAERS Safety Report 14659621 (Version 2)
Quarter: 2018Q2

REPORT INFORMATION
  Report Type: Spontaneous
  Country: FR (occurrence: FR)
  Receive Date: 20180320
  Receipt Date: 20180404
  Transmission Date: 20180711
  Serious: Yes (Hospitalization, Other)
  Sender: FDA-Public Use
  Company Number: FR-MYLANLABS-2018M1016519

PATIENT
  Age: 63 Year
  Sex: Male

DRUGS (4)
  1. MYCOPHENOLATE MOFETIL. [Suspect]
     Active Substance: MYCOPHENOLATE MOFETIL
     Indication: IMMUNOSUPPRESSANT DRUG THERAPY
  2. TACROLIMUS. [Suspect]
     Active Substance: TACROLIMUS
     Indication: IMMUNOSUPPRESSANT DRUG THERAPY
     Dosage: SERUM TROUGH LEVELS BETWEEN 5 AND 6 UG/L
  3. TACROLIMUS. [Suspect]
     Active Substance: TACROLIMUS
     Indication: LUNG TRANSPLANT
     Dosage: SERUM TROUGH LEVELS BETWEEN 7 AND 8 UG/L
  4. MYCOPHENOLATE MOFETIL. [Suspect]
     Active Substance: MYCOPHENOLATE MOFETIL
     Indication: LUNG TRANSPLANT
     Dosage: 1000 MG, BID

REACTIONS (13)
  - Lung transplant rejection [Unknown]
  - Product use in unapproved indication [Unknown]
  - Ataxia [Unknown]
  - Lymphopenia [Unknown]
  - Transient aphasia [Unknown]
  - Dysmetria [Unknown]
  - Phaehyphomycosis [Recovering/Resolving]
  - Gait disturbance [Unknown]
  - Headache [Unknown]
  - Cerebellar syndrome [Unknown]
  - Dyskinesia [Unknown]
  - Brain abscess [Unknown]
  - Aphasia [Unknown]
